FAERS Safety Report 16152341 (Version 1)
Quarter: 2019Q2

REPORT INFORMATION
  Report Type: Report from Study
  Country: GB (occurrence: GB)
  Receive Date: 20190403
  Receipt Date: 20190403
  Transmission Date: 20190711
  Serious: Yes (Death)
  Sender: FDA-Public Use
  Company Number: GB-MYLANLABS-2019M1030262

PATIENT
  Age: 7 Decade
  Sex: Female

DRUGS (2)
  1. FLUOROURACIL. [Suspect]
     Active Substance: FLUOROURACIL
     Indication: ANAL SQUAMOUS CELL CARCINOMA
     Route: 065
  2. CARBOPLATIN. [Suspect]
     Active Substance: CARBOPLATIN
     Indication: ANAL SQUAMOUS CELL CARCINOMA
     Route: 065

REACTIONS (3)
  - Cerebrovascular accident [Fatal]
  - Cardiac failure congestive [Fatal]
  - Renal failure [Fatal]
